FAERS Safety Report 8125801-8 (Version None)
Quarter: 2012Q1

REPORT INFORMATION
  Report Type: 
  Country: None (occurrence: None)
  Receive Date: 20120209
  Receipt Date: 20120201
  Transmission Date: 20120608
  Serious: Yes (Hospitalization, Other)
  Sender: FDA-Public Use
  Company Number: BR-ABBOTT-12P-020-0900824-00

PATIENT
  Sex: Female
  Weight: 67 kg

DRUGS (6)
  1. PANTOPRAZOLE [Concomitant]
     Indication: GASTRIC DISORDER
     Route: 048
  2. PANTOPRAZOLE [Concomitant]
     Indication: PROPHYLAXIS
  3. HUMIRA [Suspect]
     Indication: RHEUMATOID ARTHRITIS
     Route: 058
  4. LASIX [Concomitant]
     Indication: DIURETIC THERAPY
     Route: 048
  5. REUQUINOL [Concomitant]
     Dosage: 1/2 TAB DAILY
     Dates: start: 20120127
  6. REUQUINOL [Concomitant]
     Indication: MUSCULOSKELETAL PAIN
     Route: 048

REACTIONS (7)
  - CEREBROVASCULAR ACCIDENT [None]
  - MYOCARDIAL INFARCTION [None]
  - RENAL FAILURE [None]
  - RENAL DISORDER [None]
  - ANAEMIA [None]
  - BLOOD PRESSURE FLUCTUATION [None]
  - RENAL IMPAIRMENT [None]
